FAERS Safety Report 9371022 (Version 2)
Quarter: 2013Q3

REPORT INFORMATION
  Report Type: Spontaneous
  Country: US (occurrence: US)
  Receive Date: 20130627
  Receipt Date: 20130903
  Transmission Date: 20140515
  Serious: Yes (Hospitalization, Other)
  Sender: FDA-Public Use
  Company Number: US-PAR PHARMACEUTICAL, INC-2013SCPR005981

PATIENT
  Sex: 0

DRUGS (1)
  1. METOCLOPRAMIDE [Suspect]
     Indication: PRODUCT USED FOR UNKNOWN INDICATION
     Dosage: 10 MG, QID
     Route: 048
     Dates: start: 2008, end: 200909

REACTIONS (9)
  - Diabetic retinopathy [Unknown]
  - Diabetes mellitus inadequate control [Unknown]
  - Neuropathy peripheral [Unknown]
  - Sleep apnoea syndrome [Unknown]
  - Urinary incontinence [Unknown]
  - Cardiac failure congestive [Unknown]
  - Tardive dyskinesia [Unknown]
  - Middle insomnia [Unknown]
  - Somnolence [Unknown]
